FAERS Safety Report 8533930-X (Version None)
Quarter: 2012Q3

REPORT INFORMATION
  Report Type: 
  Country: None (occurrence: None)
  Receive Date: 20120724
  Receipt Date: 20120717
  Transmission Date: 20120928
  Serious: Yes (Other)
  Sender: FDA-Public Use
  Company Number: IT-ROCHE-1089208

PATIENT
  Sex: Female
  Weight: 57 kg

DRUGS (8)
  1. PACLITAXEL [Suspect]
     Indication: BREAST CANCER
     Dosage: DATE OF LAST DOSE PRIOR TO SAE:10/JUL/2012
     Route: 042
     Dates: start: 20120528
  2. HERCEPTIN [Suspect]
     Indication: BREAST CANCER
     Dosage: DATE OF LAST DOSE PRIOR TO SAE: 10/JUL/2012, LOADING DOSE
     Route: 042
     Dates: start: 20120528
  3. FLUOROURACIL [Suspect]
     Indication: BREAST CANCER
  4. PERTUZUMAB [Suspect]
     Dosage: MAINTANANCE DOSE
     Route: 042
  5. PERTUZUMAB [Suspect]
     Indication: BREAST CANCER
     Dosage: DATE OF LAST DOSE PRIOR TO SAE WAS 10/JUL/2012, LOADING DOSE
     Route: 042
     Dates: start: 20120528
  6. HERCEPTIN [Suspect]
     Dosage: MAINTANENCE DOSE
     Route: 042
  7. EPIRUBICIN HYDROCHLORIDE [Suspect]
     Indication: BREAST CANCER
  8. BISOPROLOL FUMARATE [Concomitant]
     Dates: start: 20120413, end: 20120711

REACTIONS (1)
  - ATRIAL FIBRILLATION [None]
